FAERS Safety Report 10183958 (Version 1)
Quarter: 2014Q2

REPORT INFORMATION
  Report Type: Spontaneous
  Country: GB (occurrence: GB)
  Receive Date: 20140520
  Receipt Date: 20140520
  Transmission Date: 20141212
  Serious: Yes (Disabling, Congenital Anomaly)
  Sender: FDA-Public Use
  Company Number: GB-009507513-1405GBR009188

PATIENT
  Sex: Female

DRUGS (11)
  1. MIRTAZAPINE [Suspect]
     Indication: SCHIZOPHRENIA
     Route: 064
  2. ARIPIPRAZOLE [Suspect]
     Indication: SCHIZOPHRENIA
     Route: 064
  3. PROCYCLIDINE HYDROCHLORIDE [Suspect]
     Indication: SCHIZOPHRENIA
     Route: 064
  4. ZOPICLONE [Suspect]
     Indication: SCHIZOPHRENIA
     Route: 064
  5. LAMOTRIGINE [Suspect]
     Indication: SCHIZOPHRENIA
     Route: 064
  6. NICORETTE (NICOTINE) [Concomitant]
     Route: 064
     Dates: start: 20130808
  7. VENTOLIN (ALBUTEROL SULFATE) [Concomitant]
     Route: 064
     Dates: start: 20131129
  8. CEPHALEXIN [Concomitant]
     Indication: URINARY TRACT INFECTION
     Route: 064
     Dates: start: 20130827
  9. CYCLIZINE [Concomitant]
     Route: 064
     Dates: start: 20130902
  10. CLARITHROMYCIN [Concomitant]
     Route: 064
     Dates: start: 20131129
  11. VITAMINS (UNSPECIFIED) [Concomitant]
     Indication: PREGNANCY
     Dosage: OVER THE COUNTER PREGNANCY VITAMINS AND MINERALS
     Route: 064

REACTIONS (4)
  - Developmental hip dysplasia [Unknown]
  - Agitation neonatal [Unknown]
  - Feeding disorder neonatal [Unknown]
  - Muscular weakness [Unknown]
